FAERS Safety Report 24432453 (Version 1)
Quarter: 2024Q4

REPORT INFORMATION
  Report Type: Spontaneous
  Country: CA (occurrence: CA)
  Receive Date: 20241014
  Receipt Date: 20241014
  Transmission Date: 20250115
  Serious: Yes (Other)
  Sender: CELLTRION
  Company Number: CA-CELLTRION INC.-2024CA006149

PATIENT

DRUGS (12)
  1. YUFLYMA [Suspect]
     Active Substance: ADALIMUMAB-AATY
     Indication: Crohn^s disease
     Dosage: 40 MG, EVERY 2 WEEKS/EVERY OTHER WEEK
     Route: 058
     Dates: start: 20240102
  2. YUFLYMA [Suspect]
     Active Substance: ADALIMUMAB-AATY
     Dosage: 40 MG, EVERY 2 WEEKS/EVERY OTHER WEEK
     Route: 058
     Dates: start: 20240709
  3. VITAMIN D NOS [Concomitant]
     Active Substance: CHOLECALCIFEROL\ERGOCALCIFEROL
     Indication: Supplementation therapy
     Dosage: 4000 IU/DAY
  4. VITAMIN C [Concomitant]
     Active Substance: ASCORBIC ACID
     Indication: Supplementation therapy
     Dosage: 1000
  5. LACTASE [Concomitant]
     Active Substance: LACTASE
     Indication: Supplementation therapy
     Dosage: 2 OF THOSE IF HAVING DAIRY
  6. RETINOL [Concomitant]
     Active Substance: RETINOL
     Indication: Supplementation therapy
     Dosage: 10000 IU
  7. FOLIC ACID [Concomitant]
     Active Substance: FOLIC ACID
     Indication: Supplementation therapy
     Dosage: 3 MG/DAY
  8. FERROUS BISGLYCINATE [Concomitant]
     Active Substance: FERROUS BISGLYCINATE
     Indication: Supplementation therapy
     Dosage: 20 MG, 2/DAY
  9. MITOCHONDRIAL NRG [Concomitant]
     Indication: Supplementation therapy
     Dosage: 2X/DAY
  10. CHROMIUM [Concomitant]
     Active Substance: CHROMIC CHLORIDE\CHROMIUM
     Indication: Supplementation therapy
     Dosage: 200 MCG
  11. FUSIDIC ACID [Concomitant]
     Active Substance: FUSIDIC ACID
     Dosage: TOPICALLY, 2 TIMES/DAY
     Route: 061
  12. CLOXACILLIN [Concomitant]
     Active Substance: CLOXACILLIN
     Dosage: 1 TABLET, 4 TIMES/DAY X 7 DAYS

REACTIONS (4)
  - Surgery [Unknown]
  - Malaise [Unknown]
  - Localised infection [Recovering/Resolving]
  - Intentional dose omission [Recovering/Resolving]

NARRATIVE: CASE EVENT DATE: 20240723
